FAERS Safety Report 7947201-3 (Version None)
Quarter: 2011Q4

REPORT INFORMATION
  Report Type: 
  Country: None (occurrence: None)
  Receive Date: 20111129
  Receipt Date: 20111115
  Transmission Date: 20120403
  Serious: Yes (Hospitalization, Other)
  Sender: FDA-Public Use
  Company Number: US-ASTRAZENECA-2011SE44569

PATIENT
  Age: 83 Year
  Sex: Female
  Weight: 78 kg

DRUGS (18)
  1. SEROQUEL [Suspect]
     Indication: BIPOLAR DISORDER
     Route: 048
  2. XALATAN [Concomitant]
     Dosage: DAILY IN BOTH EYES
  3. VITAMIN B-12 [Concomitant]
  4. MULTI-VITAMINS [Concomitant]
  5. MAGNESIUM OXIDE [Concomitant]
  6. LYRICA [Concomitant]
     Indication: ARTHRALGIA
     Dates: start: 20110101
  7. ASCORBIC ACID [Concomitant]
  8. ATARAX [Concomitant]
  9. CALCIUM CARBONATE WITH VITAMIN D [Concomitant]
  10. LASIX [Concomitant]
  11. POTASSIUM CHLORIDE [Concomitant]
  12. PYRIDOXINE HCL [Concomitant]
  13. SEROQUEL [Suspect]
     Indication: SLEEP DISORDER
     Route: 048
  14. LORAZEPAM [Concomitant]
  15. MYLANTA [Concomitant]
     Dosage: AS NEEDED
  16. ARIMIDEX [Suspect]
     Route: 048
     Dates: start: 20050101
  17. SEROQUEL [Suspect]
     Indication: DEPRESSION
     Route: 048
  18. SARNA LOTION [Concomitant]
     Indication: PRURITUS
     Dosage: TWICE A DAY

REACTIONS (19)
  - INSOMNIA [None]
  - HYPOMAGNESAEMIA [None]
  - EPIDERMAL NECROSIS [None]
  - DEPRESSION [None]
  - ANXIETY [None]
  - LOGORRHOEA [None]
  - CELLULITIS [None]
  - ARTHRALGIA [None]
  - BREAST CANCER [None]
  - HYPOAESTHESIA [None]
  - PRURITUS [None]
  - OFF LABEL USE [None]
  - DRUG DOSE OMISSION [None]
  - RASH [None]
  - DERMATITIS PSORIASIFORM [None]
  - TARDIVE DYSKINESIA [None]
  - HYPOTHYROIDISM [None]
  - HYPOKALAEMIA [None]
  - OEDEMA PERIPHERAL [None]
